FAERS Safety Report 18985017 (Version 1)
Quarter: 2021Q1

REPORT INFORMATION
  Report Type: Spontaneous
  Country: US (occurrence: US)
  Receive Date: 20210309
  Receipt Date: 20210309
  Transmission Date: 20210420
  Serious: No
  Sender: FDA-Public Use
  Company Number: US-GLENMARK PHARMACEUTICALS-2020GMK046838

PATIENT

DRUGS (1)
  1. IMIQUIMOD CREAM USP, 5% [Suspect]
     Active Substance: IMIQUIMOD
     Indication: BASAL CELL CARCINOMA
     Dosage: ONCE A DAY 5 TIMES A WEEK FOR 5 TO 6 WEEKS MAXIMUM
     Route: 061
     Dates: start: 20200320, end: 20200322

REACTIONS (4)
  - Wrong technique in product usage process [Unknown]
  - Product use in unapproved indication [Unknown]
  - No adverse event [Unknown]
  - Therapy cessation [Unknown]

NARRATIVE: CASE EVENT DATE: 202003
